FAERS Safety Report 5950897-9 (Version None)
Quarter: 2008Q4

REPORT INFORMATION
  Report Type: 
  Country: None (occurrence: None)
  Receive Date: 20081110
  Receipt Date: 20081029
  Transmission Date: 20090506
  Serious: Yes (Hospitalization, Other)
  Sender: FDA-Public Use
  Company Number: 53798

PATIENT
  Age: 25 Year
  Sex: Male

DRUGS (1)
  1. KETAMINE HCL [Suspect]

REACTIONS (8)
  - CONTRACTED BLADDER [None]
  - CYSTITIS ULCERATIVE [None]
  - DRUG ABUSE [None]
  - DYSURIA [None]
  - HAEMATURIA [None]
  - HAEMODIALYSIS [None]
  - RENAL FAILURE CHRONIC [None]
  - SUPRAPUBIC PAIN [None]
